FAERS Safety Report 7907891-8 (Version None)
Quarter: 2011Q4

REPORT INFORMATION
  Report Type: 
  Country: None (occurrence: None)
  Receive Date: 20111110
  Receipt Date: 20111028
  Transmission Date: 20120403
  Serious: Yes (Other)
  Sender: FDA-Public Use
  Company Number: JP-ASTRAZENECA-2011SE67147

PATIENT
  Age: 43 Year
  Sex: Male

DRUGS (3)
  1. MEROPENEM [Suspect]
     Indication: CELLULITIS
     Route: 042
     Dates: start: 20111024
  2. FLOMOX [Concomitant]
     Route: 048
  3. HYPNOTICS AND SEDATIVES [Concomitant]

REACTIONS (1)
  - BLOOD POTASSIUM INCREASED [None]
